FAERS Safety Report 4553775-5 (Version None)
Quarter: 2004Q4

REPORT INFORMATION
  Report Type: 
  Country: None (occurrence: None)
  Receive Date: 20041227
  Receipt Date: 20041101
  Transmission Date: 20050328
  Serious: No
  Sender: FDA-Public Use
  Company Number: 04P-163-0279656-00

PATIENT
  Age: 76 Year
  Sex: Female
  Weight: 47.6277 kg

DRUGS (11)
  1. HUMIRA [Suspect]
     Indication: RHEUMATOID ARTHRITIS
     Dosage: 40 MG, 1 IN 2 WK, SUBCUTANEOUS; SEE IMAGE
     Route: 058
     Dates: start: 20030401, end: 20030601
  2. HUMIRA [Suspect]
     Indication: RHEUMATOID ARTHRITIS
     Dosage: 40 MG, 1 IN 2 WK, SUBCUTANEOUS; SEE IMAGE
     Route: 058
     Dates: start: 20030601, end: 20041022
  3. HUMIRA [Suspect]
     Indication: RHEUMATOID ARTHRITIS
     Dosage: 40 MG, 1 IN 2 WK, SUBCUTANEOUS; SEE IMAGE
     Route: 058
     Dates: start: 20041022
  4. PNEUMONIA VACCINE [Concomitant]
  5. PREDNISONE [Concomitant]
  6. METOPROLOL SUCCINATE [Concomitant]
  7. VALSARTAN [Concomitant]
  8. BUCINDOLOL HYDROCHLORIDE [Concomitant]
  9. ULTRACET [Concomitant]
  10. NORTRIPTYLINE HCL [Concomitant]
  11. GABAPENTIN [Concomitant]

REACTIONS (3)
  - DIARRHOEA [None]
  - DRUG INEFFECTIVE [None]
  - NAUSEA [None]
